FAERS Safety Report 9133802 (Version 1)
Quarter: 2013Q1

REPORT INFORMATION
  Report Type: Spontaneous
  Country: US (occurrence: US)
  Receive Date: 20130303
  Receipt Date: 20130303
  Transmission Date: 20140127
  Serious: No
  Sender: FDA-Public Use
  Company Number: US-ENDO PHARMACEUTICALS INC.-VANT20100081

PATIENT
  Sex: Male

DRUGS (2)
  1. VANTAS [Suspect]
     Indication: PROSTATE CANCER
     Route: 058
     Dates: start: 20100803
  2. VANTAS [Suspect]
     Route: 058
     Dates: start: 201007, end: 20100803

REACTIONS (2)
  - Mood swings [Not Recovered/Not Resolved]
  - Procedural complication [Recovered/Resolved]
